FAERS Safety Report 18497806 (Version 2)
Quarter: 2022Q1

REPORT INFORMATION
  Report Type: Spontaneous
  Country: HU (occurrence: HU)
  Receive Date: 20201112
  Receipt Date: 20220110
  Transmission Date: 20220423
  Serious: Yes (Hospitalization)
  Sender: FDA-Public Use
  Company Number: HU-TEVA-2020-HU-1840346

PATIENT
  Age: 64 Year
  Sex: Male

DRUGS (8)
  1. FENTANYL [Suspect]
     Active Substance: FENTANYL
     Indication: Intervertebral discitis
     Dosage: UNK
     Route: 062
  2. FENTANYL [Suspect]
     Active Substance: FENTANYL
     Indication: Pain
     Dosage: UNK
  3. PREGABALIN [Suspect]
     Active Substance: PREGABALIN
     Indication: Intervertebral discitis
     Dosage: UNK
     Route: 065
  4. PREGABALIN [Suspect]
     Active Substance: PREGABALIN
     Indication: Pain
     Dosage: UNK
  5. TOLPERISONE [Suspect]
     Active Substance: TOLPERISONE
     Indication: Intervertebral discitis
     Dosage: UNK
     Route: 065
  6. TOLPERISONE [Suspect]
     Active Substance: TOLPERISONE
     Indication: Pain
     Dosage: UNK
  7. BACLOFEN [Suspect]
     Active Substance: BACLOFEN
     Indication: Pain
     Dosage: UNK
     Route: 065
  8. BACLOFEN [Suspect]
     Active Substance: BACLOFEN
     Indication: Intervertebral discitis
     Dosage: UNK

REACTIONS (1)
  - Drug ineffective [Unknown]

NARRATIVE: CASE EVENT DATE: 20191001
